FAERS Safety Report 9691255 (Version 1)
Quarter: 2013Q4

REPORT INFORMATION
  Report Type: Report from Study
  Country: BR (occurrence: BR)
  Receive Date: 20131115
  Receipt Date: 20131115
  Transmission Date: 20140711
  Serious: Yes (Hospitalization, Other)
  Sender: FDA-Public Use
  Company Number: PHHY2013BR130599

PATIENT
  Age: 58 Year
  Sex: Female

DRUGS (3)
  1. DIOVAN [Suspect]
     Indication: HYPERTENSION
     Dosage: 1 DF (160MG), DAILY
     Route: 048
     Dates: end: 20131108
  2. DIOVAN [Suspect]
     Dosage: 1 DF (160MG), UNK
     Dates: start: 20131113
  3. CITALOPRAM [Concomitant]
     Indication: SLEEP DISORDER
     Dosage: 1 DF (20MG), DAILY
     Route: 048

REACTIONS (20)
  - Carotid artery occlusion [Unknown]
  - Condition aggravated [Unknown]
  - Osteopenia [Not Recovered/Not Resolved]
  - Body height decreased [Not Recovered/Not Resolved]
  - Pain [Recovered/Resolved]
  - Muscular weakness [Recovered/Resolved]
  - Musculoskeletal disorder [Recovering/Resolving]
  - Pain in extremity [Recovered/Resolved]
  - Tremor [Recovered/Resolved]
  - Rhinalgia [Recovered/Resolved]
  - Vision blurred [Recovered/Resolved]
  - Eye pain [Recovered/Resolved]
  - Feeling hot [Recovered/Resolved]
  - Sneezing [Recovered/Resolved]
  - Oropharyngeal pain [Recovered/Resolved]
  - Decreased appetite [Recovered/Resolved]
  - Cough [Recovered/Resolved]
  - Muscle spasms [Recovered/Resolved]
  - Dizziness [Recovered/Resolved]
  - Back pain [Recovered/Resolved]
